FAERS Safety Report 9205019 (Version 2)
Quarter: 2013Q4

REPORT INFORMATION
  Report Type: Report from Study
  Country: US (occurrence: US)
  Receive Date: 20130402
  Receipt Date: 20131015
  Transmission Date: 20140711
  Serious: Yes (Other)
  Sender: FDA-Public Use
  Company Number: US-ROCHE-1052836

PATIENT
  Age: 63 Year
  Sex: 0

DRUGS (2)
  1. VEMURAFENIB [Suspect]
     Indication: MALIGNANT MELANOMA
     Route: 065
  2. IPILIMUMAB [Interacting]
     Indication: MALIGNANT MELANOMA
     Route: 065

REACTIONS (2)
  - Rash maculo-papular [Recovered/Resolved]
  - Drug interaction [Unknown]
